FAERS Safety Report 4795759-8 (Version None)
Quarter: 2005Q3

REPORT INFORMATION
  Report Type: 
  Country: None (occurrence: None)
  Receive Date: 20050929
  Receipt Date: 20050726
  Transmission Date: 20060218
  Serious: No
  Sender: FDA-Public Use
  Company Number: 05P-163-0306703-00

PATIENT
  Age: 51 Year
  Sex: Female
  Weight: 68.9467 kg

DRUGS (8)
  1. HUMIRA [Suspect]
     Indication: RHEUMATOID ARTHRITIS
     Dosage: 40 MG, 1IN 2 WK, SUBCUTANEOUS; 40 MG, 1 IN 1 WK, SUBCUTANEOUS
     Route: 058
     Dates: start: 20030101, end: 20040101
  2. HUMIRA [Suspect]
     Indication: RHEUMATOID ARTHRITIS
     Dosage: 40 MG, 1IN 2 WK, SUBCUTANEOUS; 40 MG, 1 IN 1 WK, SUBCUTANEOUS
     Route: 058
     Dates: start: 20040101
  3. PIROXICAM [Concomitant]
  4. LEFLUNOMIDE [Concomitant]
  5. HYDROXYCHLOROQUINE PHOSPHATE [Concomitant]
  6. ATENOLOL [Concomitant]
  7. LISINOPRIL [Concomitant]
  8. RANITIDINE HYDROCHLORIDE [Concomitant]

REACTIONS (1)
  - INJECTION SITE IRRITATION [None]
